FAERS Safety Report 14986934 (Version 5)
Quarter: 2019Q2

REPORT INFORMATION
  Report Type: Spontaneous
  Country: JP (occurrence: JP)
  Receive Date: 20180608
  Receipt Date: 20190514
  Transmission Date: 20190711
  Serious: Yes (Death, Hospitalization, Other)
  Sender: FDA-Public Use
  Company Number: JP-BRISTOL-MYERS SQUIBB COMPANY-BMS-2018-053094

PATIENT
  Age: 79 Year
  Sex: Male

DRUGS (1)
  1. OPDIVO [Suspect]
     Active Substance: NIVOLUMAB
     Indication: GASTRIC CANCER
     Dosage: 3 MILLIGRAM/KILOGRAM, Q2WK
     Route: 041
     Dates: start: 201803, end: 201805

REACTIONS (2)
  - Thrombocytopenia [Fatal]
  - Enterocolitis bacterial [Fatal]

NARRATIVE: CASE EVENT DATE: 2018
